FAERS Safety Report 6060089-3 (Version None)
Quarter: 2009Q1

REPORT INFORMATION
  Report Type: 
  Country: None (occurrence: None)
  Receive Date: 20090127
  Receipt Date: 20090113
  Transmission Date: 20090719
  Serious: Yes (Death)
  Sender: FDA-Public Use
  Company Number: 005434

PATIENT
  Age: 73 Year
  Sex: Female
  Weight: 46 kg

DRUGS (12)
  1. PLETAL [Suspect]
     Indication: VENOUS THROMBOSIS LIMB
     Route: 048
     Dates: start: 20081026
  2. RHEUMATREX [Suspect]
     Indication: RHEUMATOID ARTHRITIS
     Dosage: 4 MG, QW
     Route: 048
     Dates: end: 20081112
  3. ACTEMRA (TOCILIZUMAB (GENETICAL RECOMBINATION) [Suspect]
     Indication: RHEUMATOID ARTHRITIS
     Dosage: 400 MG, QD; IV DRIP
     Route: 041
     Dates: start: 20080516, end: 20080516
  4. ACTEMRA (TOCILIZUMAB (GENETICAL RECOMBINATION) [Suspect]
     Indication: RHEUMATOID ARTHRITIS
     Dosage: 400 MG, QD; IV DRIP
     Route: 041
     Dates: start: 20080610, end: 20080610
  5. ACTEMRA (TOCILIZUMAB (GENETICAL RECOMBINATION) [Suspect]
     Indication: RHEUMATOID ARTHRITIS
     Dosage: 400 MG, QD; IV DRIP
     Route: 041
     Dates: start: 20080709, end: 20080709
  6. ACTEMRA (TOCILIZUMAB (GENETICAL RECOMBINATION) [Suspect]
     Indication: RHEUMATOID ARTHRITIS
     Dosage: 400 MG, QD; IV DRIP
     Route: 041
     Dates: start: 20080806, end: 20080806
  7. ACTEMRA (TOCILIZUMAB (GENETICAL RECOMBINATION) [Suspect]
     Indication: RHEUMATOID ARTHRITIS
     Dosage: 400 MG, QD; IV DRIP
     Route: 041
     Dates: start: 20080903, end: 20080903
  8. ACTEMRA (TOCILIZUMAB (GENETICAL RECOMBINATION) [Suspect]
     Indication: RHEUMATOID ARTHRITIS
     Dosage: 400 MG, QD; IV DRIP
     Route: 041
     Dates: start: 20081001, end: 20081001
  9. WARFARIN POTASSIUM (WARFARIN POTASSIUM) TABLET; REGIMEN #1 [Suspect]
     Indication: VENOUS THROMBOSIS LIMB
     Route: 048
     Dates: start: 20081016
  10. PREDNISOLONE [Concomitant]
  11. BONALON 35MG (ALENDRONATE SODIUM) [Concomitant]
  12. OMEPRAZOLE [Concomitant]

REACTIONS (5)
  - CONDITION AGGRAVATED [None]
  - DRUG INEFFECTIVE [None]
  - FALL [None]
  - INTERSTITIAL LUNG DISEASE [None]
  - VENOUS THROMBOSIS LIMB [None]
